FAERS Safety Report 5799037-X (Version None)
Quarter: 2008Q3

REPORT INFORMATION
  Report Type: 
  Country: None (occurrence: None)
  Receive Date: 20080702
  Receipt Date: 20080304
  Transmission Date: 20090109
  Serious: No
  Sender: FDA-Public Use
  Company Number: US-BRISTOL-MYERS SQUIBB COMPANY-14101505

PATIENT
  Age: 40 Year
  Sex: Male
  Weight: 119 kg

DRUGS (12)
  1. SPRYCEL [Suspect]
     Indication: CHRONIC MYELOID LEUKAEMIA
     Dosage: INTERRUPED X 10 DAYS, RESTARTED AT 70MG/DAILY FROM 1MAR08 TO 3MAR08; DISCONTINUED.
     Route: 048
     Dates: start: 20080204, end: 20080301
  2. LOPRESSOR [Concomitant]
  3. PRILOSEC [Concomitant]
  4. VERAPAMIL [Concomitant]
  5. LOTREL [Concomitant]
  6. VALIUM [Concomitant]
  7. CYMBALTA [Concomitant]
  8. NORCO [Concomitant]
  9. PERCOCET [Concomitant]
  10. IBUPROFEN [Concomitant]
  11. METFORMIN HCL [Concomitant]
  12. TIMOLOL MALEATE [Concomitant]

REACTIONS (10)
  - AGITATION [None]
  - ANOREXIA [None]
  - DIARRHOEA [None]
  - EPISTAXIS [None]
  - HEADACHE [None]
  - MUSCULOSKELETAL PAIN [None]
  - RASH [None]
  - SOMNOLENCE [None]
  - VERTIGO [None]
  - VOMITING [None]
